FAERS Safety Report 7914409-2 (Version None)
Quarter: 2011Q4

REPORT INFORMATION
  Report Type: 
  Country: None (occurrence: None)
  Receive Date: 20111115
  Receipt Date: 20111111
  Transmission Date: 20120403
  Serious: Yes (Other)
  Sender: FDA-Public Use
  Company Number: US-PFIZER INC-2010110280

PATIENT
  Sex: Female

DRUGS (5)
  1. CHANTIX [Suspect]
     Indication: SMOKING CESSATION THERAPY
     Dosage: UNK
     Dates: start: 20081101, end: 20090301
  2. FLUOXETINE [Concomitant]
     Indication: DEPRESSION
     Dosage: UNK
     Dates: start: 20010101
  3. ESTROPIPATE [Concomitant]
     Indication: MENOPAUSE
     Dosage: UNK
     Dates: start: 19890101, end: 20100101
  4. LEVOXYL [Concomitant]
     Indication: THYROID DISORDER
     Dosage: UNK
     Dates: start: 20030101, end: 20100101
  5. CHANTIX [Suspect]
     Dosage: UNK
     Dates: start: 20100201, end: 20100301

REACTIONS (10)
  - SUICIDAL BEHAVIOUR [None]
  - ABNORMAL DREAMS [None]
  - PANIC ATTACK [None]
  - AGGRESSION [None]
  - LOSS OF CONSCIOUSNESS [None]
  - PARANOIA [None]
  - MOOD SWINGS [None]
  - DEPRESSION [None]
  - ANXIETY [None]
  - AMNESIA [None]
